FAERS Safety Report 6416081-X (Version None)
Quarter: 2009Q4

REPORT INFORMATION
  Report Type: 
  Country: None (occurrence: None)
  Receive Date: 20091027
  Receipt Date: 20091019
  Transmission Date: 20100525
  Serious: Yes (Other)
  Sender: FDA-Public Use
  Company Number: US-AMGEN-US364227

PATIENT
  Sex: Male
  Weight: 77.6 kg

DRUGS (2)
  1. NPLATE [Suspect]
     Indication: IDIOPATHIC THROMBOCYTOPENIC PURPURA
     Route: 058
     Dates: start: 20090413, end: 20090831
  2. PREDNISONE TAB [Concomitant]

REACTIONS (3)
  - CONTUSION [None]
  - GINGIVAL BLEEDING [None]
  - THERAPEUTIC RESPONSE DECREASED [None]
